FAERS Safety Report 5571015-5 (Version None)
Quarter: 2007Q4

REPORT INFORMATION
  Report Type: 
  Country: None (occurrence: None)
  Receive Date: 20071221
  Receipt Date: 20050617
  Transmission Date: 20080405
  Serious: Yes (Death, Other)
  Sender: FDA-Public Use
  Company Number: BE-ROCHE-537319

PATIENT
  Sex: Male

DRUGS (4)
  1. CELLCEPT [Suspect]
     Route: 065
  2. PROGRAFT [Concomitant]
  3. METHYLPREDNISOLONE [Concomitant]
  4. SANDIMMUNE [Concomitant]

REACTIONS (2)
  - COLITIS EROSIVE [None]
  - LYMPHOMA [None]
